FAERS Safety Report 12341323 (Version 1)
Quarter: 2016Q2

REPORT INFORMATION
  Report Type: Spontaneous
  Country: US (occurrence: US)
  Receive Date: 20160506
  Receipt Date: 20160506
  Transmission Date: 20160815
  Serious: No
  Sender: FDA-Public Use
  Company Number: US-BAYER-2016-082968

PATIENT
  Age: 88 Year
  Sex: Female
  Weight: 87.53 kg

DRUGS (2)
  1. CLARITIN [Suspect]
     Active Substance: LORATADINE
     Indication: SEASONAL ALLERGY
     Dosage: 1 DF, PRN
     Route: 048
     Dates: start: 201511
  2. ONE A DAY WOMEN^S PETITES [Concomitant]
     Active Substance: MINERALS\VITAMINS

REACTIONS (1)
  - Pruritus [None]

NARRATIVE: CASE EVENT DATE: 201603
